FAERS Safety Report 5541477-8 (Version None)
Quarter: 2007Q4

REPORT INFORMATION
  Report Type: 
  Country: None (occurrence: None)
  Receive Date: 20071210
  Receipt Date: 20071129
  Transmission Date: 20080405
  Serious: Yes (Hospitalization, Other)
  Sender: FDA-Public Use
  Company Number: HR-NOVOPROD-269890

PATIENT
  Sex: Female
  Weight: 56 kg

DRUGS (2)
  1. NOVORAPID [Suspect]
     Indication: TYPE 1 DIABETES MELLITUS
     Dosage: 8+6+5 IU
     Route: 058
     Dates: start: 20031003
  2. LEVEMIR [Concomitant]
     Indication: TYPE 1 DIABETES MELLITUS
     Dosage: 15+13 IU
     Route: 058
     Dates: start: 20060317, end: 20070709

REACTIONS (3)
  - PLACENTAL DISORDER [None]
  - PREMATURE LABOUR [None]
  - VAGINAL HAEMORRHAGE [None]
